FAERS Safety Report 14366978 (Version 2)
Quarter: 2018Q1

REPORT INFORMATION
  Report Type: Spontaneous
  Country: US (occurrence: US)
  Receive Date: 20180109
  Receipt Date: 20180228
  Transmission Date: 20180509
  Serious: Yes (Hospitalization, Other)
  Sender: FDA-Public Use
  Company Number: US-GLAXOSMITHKLINE-US2018001478

PATIENT
  Age: 65 Year
  Sex: Female

DRUGS (8)
  1. CALCIUM [Concomitant]
     Active Substance: CALCIUM
  2. TRULICITY [Concomitant]
     Active Substance: DULAGLUTIDE
  3. DUONEB [Concomitant]
     Active Substance: ALBUTEROL SULFATE\IPRATROPIUM BROMIDE
  4. MUCINEX [Concomitant]
     Active Substance: GUAIFENESIN
  5. ADVAIR DISKUS [Suspect]
     Active Substance: FLUTICASONE PROPIONATE\SALMETEROL XINAFOATE
     Indication: CHRONIC OBSTRUCTIVE PULMONARY DISEASE
     Dosage: 1 PUFF(S), BID
  6. ADVAIR DISKUS [Suspect]
     Active Substance: FLUTICASONE PROPIONATE\SALMETEROL XINAFOATE
     Indication: ASTHMA
  7. PREDNISONE. [Suspect]
     Active Substance: PREDNISONE
     Indication: PRODUCT USED FOR UNKNOWN INDICATION
  8. ALBUTEROL INHALER [Concomitant]
     Active Substance: ALBUTEROL

REACTIONS (19)
  - Candida infection [Recovered/Resolved]
  - Upper respiratory tract infection [Unknown]
  - Lower respiratory tract congestion [Unknown]
  - Fibromyalgia [Unknown]
  - Vomiting [Unknown]
  - Oxygen saturation decreased [Unknown]
  - Multiple allergies [Unknown]
  - Tooth fracture [Recovered/Resolved]
  - Nausea [Unknown]
  - Spinal fracture [Unknown]
  - Pneumonia [Recovered/Resolved]
  - Sinusitis [Unknown]
  - Body height decreased [Unknown]
  - Influenza [Unknown]
  - Wheezing [Unknown]
  - Drug effect decreased [Unknown]
  - Oropharyngeal pain [Unknown]
  - Urinary tract infection [Unknown]
  - Dehydration [Unknown]

NARRATIVE: CASE EVENT DATE: 2009
